FAERS Safety Report 9761036 (Version 2)
Quarter: 2013Q4

REPORT INFORMATION
  Report Type: Spontaneous
  Country: US (occurrence: US)
  Receive Date: 20131216
  Receipt Date: 20131218
  Transmission Date: 20140711
  Serious: Yes (Other)
  Sender: FDA-Public Use
  Company Number: PHEH2013US025518

PATIENT
  Sex: Female

DRUGS (13)
  1. DIOVAN HCT [Suspect]
     Indication: HYPERTENSION
     Dosage: 1 DF, (160MG VALS, 12.5MG HCTZ) QD
     Route: 048
  2. DIOVAN HCT [Suspect]
     Dosage: 1 DF, (160MG VALS, 12.5MG HCTZ) QD
     Route: 048
  3. VALSARTAN+HYDROCHLOROTHIAZIDE SANDOZ [Suspect]
     Indication: HYPERTENSION
     Dosage: 1 DF (160MG VALS, 12.5MG HCTZ) QD
     Route: 048
  4. VALSARTAN HCT [Concomitant]
     Indication: HYPERTENSION
     Dosage: 1 DF, (160/ 12,5 MG)
     Route: 048
  5. NORVASC [Concomitant]
     Dosage: UNK UKN, UNK
  6. METFORMIN [Concomitant]
     Dosage: UNK UKN, UNK
  7. SIMVASTAT [Concomitant]
     Dosage: UNK UKN, UNK
  8. SINGULAIR [Concomitant]
     Dosage: UNK UKN, UNK
  9. FOLIC ACID [Concomitant]
     Dosage: UNK UKN, UNK
  10. VITAMIN B12 [Concomitant]
     Dosage: UNK UKN, UNK
  11. VITAMIN D [Concomitant]
     Dosage: UNK UKN, UNK
  12. AMLODIPINE BESILATE [Concomitant]
  13. GLIMEPIRIDE [Concomitant]
     Dosage: UNK UKN, UNK
     Dates: start: 20131214

REACTIONS (2)
  - Diabetes mellitus [Unknown]
  - Hypertension [Unknown]
